FAERS Safety Report 9415157 (Version 1)
Quarter: 2013Q3

REPORT INFORMATION
  Report Type: Spontaneous
  Country: US (occurrence: US)
  Receive Date: 20130723
  Receipt Date: 20130723
  Transmission Date: 20140515
  Serious: No
  Sender: FDA-Public Use
  Company Number: US-GALDERMA-US-GDP-12413423

PATIENT
  Age: 86 Year
  Sex: Male
  Weight: 75 kg

DRUGS (5)
  1. ORACEA [Suspect]
     Indication: ROSACEA
     Route: 048
     Dates: start: 20120119, end: 20120123
  2. HYDROCODONE [Concomitant]
     Indication: PAIN
     Route: 048
  3. OMEPRAZOLE [Concomitant]
     Indication: GASTROOESOPHAGEAL REFLUX DISEASE
     Route: 048
     Dates: start: 2011
  4. TYLENOL [Concomitant]
     Indication: PAIN
     Route: 048
     Dates: start: 201201
  5. ECONAZOLE NITRATE [Concomitant]

REACTIONS (3)
  - Pain in jaw [Recovered/Resolved]
  - Lymphadenopathy [Recovered/Resolved]
  - Jaw disorder [Recovered/Resolved]
